FAERS Safety Report 25551148 (Version 1)
Quarter: 2025Q3

REPORT INFORMATION
  Report Type: Spontaneous
  Country: US (occurrence: US)
  Receive Date: 20250714
  Receipt Date: 20250714
  Transmission Date: 20251021
  Serious: No
  Sender: GC Biopharma
  Company Number: US-GC BIOPHARMA-US-2025-GCBP-00009

PATIENT
  Age: 56 Year
  Sex: Male

DRUGS (1)
  1. ALYGLO [Suspect]
     Active Substance: HUMAN IMMUNOGLOBULIN G-STWK
     Indication: Product used for unknown indication
     Route: 042
     Dates: end: 20250317

REACTIONS (2)
  - Vomiting [Recovering/Resolving]
  - Headache [Recovering/Resolving]

NARRATIVE: CASE EVENT DATE: 20250318
